FAERS Safety Report 6923637-4 (Version None)
Quarter: 2010Q3

REPORT INFORMATION
  Report Type: 
  Country: None (occurrence: None)
  Receive Date: 20100813
  Receipt Date: 20100809
  Transmission Date: 20110219
  Serious: Yes (Hospitalization)
  Sender: FDA-Public Use
  Company Number: A0875629A

PATIENT
  Sex: Male

DRUGS (1)
  1. VOTRIENT [Suspect]
     Indication: PRODUCT USED FOR UNKNOWN INDICATION
     Dosage: 800MG PER DAY
     Route: 048
     Dates: start: 20100705, end: 20100715

REACTIONS (7)
  - ABDOMINAL PAIN [None]
  - HEPATIC FAILURE [None]
  - HEPATOMEGALY [None]
  - NAUSEA [None]
  - OCULAR ICTERUS [None]
  - VOMITING [None]
  - YELLOW SKIN [None]
